FAERS Safety Report 6637966-5 (Version None)
Quarter: 2010Q1

REPORT INFORMATION
  Report Type: 
  Country: None (occurrence: None)
  Receive Date: 20100317
  Receipt Date: 20100315
  Transmission Date: 20100710
  Serious: Yes (Hospitalization)
  Sender: FDA-Public Use
  Company Number: CHPA2010US05087

PATIENT
  Age: 68 Year
  Sex: Male
  Weight: 72.562 kg

DRUGS (4)
  1. EXCEDRIN (MIGRAINE) [Suspect]
     Indication: HEADACHE
     Dosage: 12 TO 14 TABLETS A DAY
     Route: 048
  2. EXCEDRIN (MIGRAINE) [Suspect]
     Indication: PAIN
  3. DILANTIN D.A. [Concomitant]
     Indication: HYPERTENSION
     Dosage: UNK, QID
     Route: 048
  4. BENAZEPRIL HYDROCHLORIDE [Concomitant]
     Dosage: UNK, UNK
     Route: 048

REACTIONS (5)
  - CEREBROVASCULAR ACCIDENT [None]
  - HYPERTENSION [None]
  - INTENTIONAL DRUG MISUSE [None]
  - MUSCULAR WEAKNESS [None]
  - OVERDOSE [None]
